FAERS Safety Report 6457952-8 (Version None)
Quarter: 2009Q4

REPORT INFORMATION
  Report Type: 
  Country: None (occurrence: None)
  Receive Date: 20091125
  Receipt Date: 20091119
  Transmission Date: 20100525
  Serious: Yes (Hospitalization, Disabling, Other)
  Sender: FDA-Public Use
  Company Number: BR-ABBOTT-09P-020-0609608-00

PATIENT
  Sex: Female
  Weight: 68 kg

DRUGS (4)
  1. HUMIRA [Suspect]
     Indication: RHEUMATOID ARTHRITIS
     Dosage: 1 INJECTION
     Route: 058
     Dates: start: 20060101
  2. LEVOTHYROXINE SODIUM [Concomitant]
     Indication: THYROID DISORDER
     Route: 048
     Dates: start: 19940101
  3. ANGELIQ [Concomitant]
     Indication: HORMONE REPLACEMENT THERAPY
     Route: 048
  4. LEFLUNOMIDE [Concomitant]
     Indication: RHEUMATOID ARTHRITIS
     Route: 048
     Dates: start: 20020101

REACTIONS (11)
  - ABDOMINAL PAIN [None]
  - ALOPECIA [None]
  - CYST [None]
  - DIARRHOEA [None]
  - DRUG THERAPY [None]
  - FATIGUE [None]
  - FOOT DEFORMITY [None]
  - HYPERTENSION [None]
  - JOINT EFFUSION [None]
  - LOSS OF CONSCIOUSNESS [None]
  - OSTEOPENIA [None]
